FAERS Safety Report 4919890-9 (Version None)
Quarter: 2006Q1

REPORT INFORMATION
  Report Type: 
  Country: None (occurrence: None)
  Receive Date: 20060217
  Receipt Date: 20060210
  Transmission Date: 20060701
  Serious: Yes (Other)
  Sender: FDA-Public Use
  Company Number: 2005160112

PATIENT
  Age: 78 Year
  Sex: Female
  Weight: 67.586 kg

DRUGS (6)
  1. LIPITOR [Suspect]
     Indication: BLOOD CHOLESTEROL
     Dosage: 10 MG (10 MG, 1 IN 1 D),
     Dates: start: 20030101
  2. HYZAAR [Concomitant]
  3. ASPIRIN [Concomitant]
  4. MULTIVITAMIN [Concomitant]
  5. CALCIUM (CALCIUM) [Concomitant]
  6. ALL OTHER THERAPEUTIC PRODUCTS (ALL OTHER THERAPEUTIC PRODUCTS) [Concomitant]

REACTIONS (7)
  - BACK PAIN [None]
  - HIGH DENSITY LIPOPROTEIN DECREASED [None]
  - LOW DENSITY LIPOPROTEIN INCREASED [None]
  - MYALGIA [None]
  - PERONEAL NERVE PALSY [None]
  - POST PROCEDURAL COMPLICATION [None]
  - SURGERY [None]
